FAERS Safety Report 13842593 (Version 1)
Quarter: 2017Q3

REPORT INFORMATION
  Report Type: Spontaneous
  Country: JP (occurrence: JP)
  Receive Date: 20170808
  Receipt Date: 20170808
  Transmission Date: 20171127
  Serious: Yes (Hospitalization, Other)
  Sender: FDA-Public Use
  Company Number: JP-009507513-1708JPN000087J

PATIENT
  Age: 66 Year
  Sex: Female
  Weight: 53 kg

DRUGS (7)
  1. ZOLPIDEM TARTRATE OD [Concomitant]
     Active Substance: ZOLPIDEM TARTRATE
     Indication: INSOMNIA
     Dosage: UNK
     Route: 048
     Dates: start: 20170507
  2. MAGNESIUM OXIDE. [Concomitant]
     Active Substance: MAGNESIUM OXIDE
     Dosage: UNK
     Route: 048
     Dates: start: 20170504
  3. KEYTRUDA [Suspect]
     Active Substance: PEMBROLIZUMAB
     Indication: LUNG ADENOCARCINOMA
     Dosage: 200 MG, Q3W
     Route: 041
     Dates: start: 20170502
  4. LAC-B [Concomitant]
     Active Substance: BIFIDOBACTERIUM SPP.
     Indication: PROPHYLAXIS
     Route: 048
     Dates: start: 20170504, end: 20170509
  5. CARBAZOCHROME SODIUM SULFONATE (+) SODIUM CHLORIDE [Concomitant]
     Indication: TRACHEAL HAEMORRHAGE
     Dosage: UNK
     Route: 048
     Dates: start: 20170605
  6. RINDERON V [Concomitant]
     Active Substance: BETAMETHASONE VALERATE
     Indication: RASH
     Dosage: UNK
     Route: 061
     Dates: start: 20170629
  7. TRANSAMIN [Concomitant]
     Active Substance: TRANEXAMIC ACID
     Indication: TRACHEAL HAEMORRHAGE
     Dosage: UNK
     Route: 048
     Dates: start: 20170605

REACTIONS (5)
  - Tracheal haemorrhage [Not Recovered/Not Resolved]
  - Pneumonia [Recovering/Resolving]
  - Insomnia [Not Recovered/Not Resolved]
  - Rash [Not Recovered/Not Resolved]
  - Lung infection [Not Recovered/Not Resolved]

NARRATIVE: CASE EVENT DATE: 20170507
